FAERS Safety Report 4761396-4 (Version None)
Quarter: 2005Q3

REPORT INFORMATION
  Report Type: 
  Country: None (occurrence: None)
  Receive Date: 20050830
  Receipt Date: 20041022
  Transmission Date: 20060218
  Serious: Yes (Other)
  Sender: FDA-Public Use
  Company Number: PHEH2004US10568

PATIENT
  Age: 83 Year
  Sex: Female

DRUGS (1)
  1. FAMVIR [Suspect]
     Indication: HERPES ZOSTER
     Dosage: 500 MG, BID, ORAL
     Route: 048
     Dates: start: 20040825, end: 20040826

REACTIONS (3)
  - CONFUSIONAL STATE [None]
  - FATIGUE [None]
  - STOMACH DISCOMFORT [None]
